FAERS Safety Report 15334654 (Version 1)
Quarter: 2018Q3

REPORT INFORMATION
  Report Type: Spontaneous
  Country: BR (occurrence: BR)
  Receive Date: 20180830
  Receipt Date: 20180830
  Transmission Date: 20181010
  Serious: Yes (Other)
  Sender: FDA-Public Use
  Company Number: BR-SA-2018SA232728

PATIENT
  Sex: Male
  Weight: 9.5 kg

DRUGS (5)
  1. FERRIC GLUCONATE TRIHYDRATE [Concomitant]
     Indication: MINERAL SUPPLEMENTATION
     Dosage: 7 DROP, QD
     Route: 048
     Dates: start: 201712
  2. ACETYLSALICYLIC ACID [Suspect]
     Active Substance: ASPIRIN
     Indication: THROMBOSIS
     Dosage: 1 DF, QD
  3. CLEXANE [Suspect]
     Active Substance: ENOXAPARIN SODIUM
     Indication: THROMBOSIS
     Dosage: 40 MG
     Dates: start: 20170320, end: 201806
  4. CLEXANE [Suspect]
     Active Substance: ENOXAPARIN SODIUM
     Dosage: 20 MG
  5. AD TIL [Concomitant]
     Indication: SUPPLEMENTATION THERAPY
     Dosage: 2 DROP, QD
     Route: 048
     Dates: start: 201712

REACTIONS (5)
  - Foetal exposure during pregnancy [Unknown]
  - Phimosis [Unknown]
  - Urinary tract infection [Unknown]
  - White blood cell disorder [Unknown]
  - Exposure via breast milk [Unknown]
